FAERS Safety Report 8228873 (Version 4)
Quarter: 2013Q3

REPORT INFORMATION
  Report Type: Report from Study
  Country: US (occurrence: US)
  Receive Date: 20111104
  Receipt Date: 20130712
  Transmission Date: 20140515
  Serious: Yes (Hospitalization)
  Sender: FDA-Public Use
  Company Number: US-BRISTOL-MYERS SQUIBB COMPANY-16198194

PATIENT
  Age: 48 Year
  Sex: Male

DRUGS (11)
  1. SAXAGLIPTIN [Suspect]
     Indication: TYPE 2 DIABETES MELLITUS
     Dates: start: 20110929, end: 20111022
  2. GLUCOPHAGE [Suspect]
     Indication: TYPE 2 DIABETES MELLITUS
     Dosage: GLUCOPHAGE XR
     Route: 048
  3. ASPIRIN [Concomitant]
     Dosage: =}100MG
     Route: 048
  4. LISINOPRIL [Concomitant]
     Route: 048
  5. ALLOPURINOL [Concomitant]
     Route: 048
  6. OMEPRAZOLE [Concomitant]
     Route: 048
  7. CRESTOR [Concomitant]
     Route: 048
  8. NITROGLYCERIN [Concomitant]
     Route: 060
  9. METOPROLOL [Concomitant]
     Route: 048
  10. ROSUVASTATIN [Concomitant]
  11. COLESTIPOL [Concomitant]
     Route: 048

REACTIONS (1)
  - Pancreatitis [Recovered/Resolved]
